FAERS Safety Report 7111036-4 (Version None)
Quarter: 2010Q4

REPORT INFORMATION
  Report Type: 
  Country: None (occurrence: None)
  Receive Date: 20101112
  Receipt Date: 20101101
  Transmission Date: 20110411
  Serious: Yes (Hospitalization)
  Sender: FDA-Public Use
  Company Number: 1000015604

PATIENT
  Age: 69 Year
  Sex: Male
  Weight: 97 kg

DRUGS (11)
  1. CELEXA [Suspect]
     Indication: DEPRESSION
     Dosage: 40 MG (40 MG, 1 IN 1 D), ORAL, 40 MG (40 MG, 1 IN 1 D), ORAL
     Route: 048
     Dates: start: 20081022, end: 20100410
  2. CELEXA [Suspect]
     Indication: DEPRESSION
     Dosage: 40 MG (40 MG, 1 IN 1 D), ORAL, 40 MG (40 MG, 1 IN 1 D), ORAL
     Route: 048
     Dates: start: 20100701
  3. BLINDED STUDY DRUG [Suspect]
     Indication: OSTEOARTHRITIS
     Dosage: TWO DAILY, ORAL
     Route: 048
     Dates: start: 20081001
  4. WELLBUTRIN [Suspect]
     Indication: DEPRESSION
     Dosage: 300 MG (300 MG, 1 IN 1 D), ORAL
     Route: 048
     Dates: start: 20070101, end: 20100406
  5. ZOCOR [Concomitant]
  6. ALDACTONE [Concomitant]
  7. ALTACE [Concomitant]
  8. ASPIRIN [Concomitant]
  9. AMBIEN [Concomitant]
  10. TOPROL-XL [Concomitant]
  11. RISPERDAL [Concomitant]

REACTIONS (5)
  - AORTIC VALVE DISEASE [None]
  - DEHYDRATION [None]
  - FATIGUE [None]
  - MITRAL VALVE CALCIFICATION [None]
  - VENTRICULAR TACHYCARDIA [None]
